FAERS Safety Report 13013348 (Version 1)
Quarter: 2016Q4

REPORT INFORMATION
  Report Type: Spontaneous
  Country: CH (occurrence: AU)
  Receive Date: 20161209
  Receipt Date: 20161209
  Transmission Date: 20170207
  Serious: Yes (Hospitalization)
  Sender: FDA-Public Use
  Company Number: CH-LPDUSPRD-20161091

PATIENT
  Age: 25 Year
  Sex: Female

DRUGS (6)
  1. FERINJECT [Suspect]
     Active Substance: FERRIC CARBOXYMALTOSE
     Dosage: 1000 MG 1 IN 1
     Route: 042
     Dates: start: 20160603, end: 20160603
  2. BISOPROLOL [Concomitant]
     Active Substance: BISOPROLOL
     Dosage: DOSE UNKNOWN
     Route: 065
  3. SPIRONOLACTONE. [Concomitant]
     Active Substance: SPIRONOLACTONE
     Dosage: DOSE UNKNOWN
     Route: 065
  4. WARFARIN [Concomitant]
     Active Substance: WARFARIN
     Dosage: DOSE UNKNOWN
     Route: 065
  5. RAMIPRIL. [Concomitant]
     Active Substance: RAMIPRIL
     Dosage: DOSE UNKNOWN
     Route: 065
  6. ROSUVASTATIN. [Concomitant]
     Active Substance: ROSUVASTATIN
     Dosage: DOSE UNKNOWN
     Route: 065

REACTIONS (5)
  - Stridor [Recovered/Resolved]
  - Dizziness [Recovered/Resolved]
  - Pruritus [Unknown]
  - Erythema [Recovered/Resolved]
  - Urticaria [Recovered/Resolved]

NARRATIVE: CASE EVENT DATE: 20160603
